FAERS Safety Report 18019779 (Version 1)
Quarter: 2020Q3

REPORT INFORMATION
  Report Type: Spontaneous
  Country: US (occurrence: US)
  Receive Date: 20200714
  Receipt Date: 20200714
  Transmission Date: 20201103
  Serious: No
  Sender: FDA-Public Use
  Company Number: US-VERTEX PHARMACEUTICALS-2020-014317

PATIENT
  Age: 38 Year
  Sex: Male
  Weight: 57 kg

DRUGS (5)
  1. TRIKAFTA [Suspect]
     Active Substance: ELEXACAFTOR\IVACAFTOR\TEZACAFTOR
     Indication: CYSTIC FIBROSIS
     Dosage: 2TABS AM(100MG ELEXACAFTOR/50MG TEZACAFTOR/75MG IVACAFTOR;1TAB(150MG IVACAFTOR)PM
     Route: 048
     Dates: start: 20200625
  2. URSODIOL. [Concomitant]
     Active Substance: URSODIOL
     Dosage: 300 MILLIGRAM
  3. CREON [Concomitant]
     Active Substance: PANCRELIPASE AMYLASE\PANCRELIPASE LIPASE\PANCRELIPASE PROTEASE
  4. OMEPRAZOLE. [Concomitant]
     Active Substance: OMEPRAZOLE
     Dosage: 20 MILLIGRAM
  5. AZITHROMYCIN ANHYDROUS. [Concomitant]
     Active Substance: AZITHROMYCIN ANHYDROUS
     Dosage: 250 MILLIGRAM

REACTIONS (3)
  - Feeling abnormal [Unknown]
  - Cough [Unknown]
  - Haemoptysis [Recovered/Resolved]

NARRATIVE: CASE EVENT DATE: 20200625
